FAERS Safety Report 13839590 (Version 1)
Quarter: 2017Q3

REPORT INFORMATION
  Report Type: Report from Study
  Country: US (occurrence: US)
  Receive Date: 20170807
  Receipt Date: 20170807
  Transmission Date: 20171127
  Serious: No
  Sender: FDA-Public Use
  Company Number: US-AMGEN-USASL2017115613

PATIENT
  Age: 79 Year
  Sex: Female

DRUGS (1)
  1. ENBREL [Suspect]
     Active Substance: ETANERCEPT
     Indication: PAIN
     Dosage: UNK, QWK
     Route: 065

REACTIONS (4)
  - Off label use [Unknown]
  - Mobility decreased [Unknown]
  - Gait disturbance [Unknown]
  - Drug effect incomplete [Unknown]
